FAERS Safety Report 6056043-8 (Version None)
Quarter: 2009Q1

REPORT INFORMATION
  Report Type: 
  Country: None (occurrence: None)
  Receive Date: 20090126
  Receipt Date: 20090108
  Transmission Date: 20090719
  Serious: Yes (Other)
  Sender: FDA-Public Use
  Company Number: 140309

PATIENT
  Age: 73 Year

DRUGS (2)
  1. DORYX [Suspect]
     Indication: LOWER RESPIRATORY TRACT INFECTION
     Dosage: 100 MG ORAL
     Route: 048
     Dates: start: 20081218, end: 20081220
  2. AMITRIPTYLINE HCL [Concomitant]

REACTIONS (2)
  - CYANOSIS [None]
  - SKIN DISCOLOURATION [None]
